FAERS Safety Report 10052358 (Version 2)
Quarter: 2014Q2

REPORT INFORMATION
  Report Type: Spontaneous
  Country: US (occurrence: US)
  Receive Date: 20140402
  Receipt Date: 20140402
  Transmission Date: 20141212
  Serious: Yes (Disabling)
  Sender: FDA-Public Use
  Company Number: US-GE HEALTHCARE MEDICAL DIAGNOSTICS-OSCN-PR-0908S-0380

PATIENT
  Age: 56 Year
  Sex: Male

DRUGS (5)
  1. OMNISCAN [Suspect]
     Indication: COLON CANCER
     Route: 042
     Dates: start: 20061102, end: 20061102
  2. GADOLINIUM (UNSPECIFIED) [Suspect]
     Indication: PRODUCT USED FOR UNKNOWN INDICATION
     Route: 042
     Dates: start: 20050425, end: 20050425
  3. OPTIMARK [Suspect]
     Indication: NEOPLASM
     Route: 042
     Dates: start: 20070119, end: 20070119
  4. OPTIMARK [Suspect]
     Indication: METASTASIS
     Route: 042
     Dates: start: 20070123, end: 20070123
  5. OPTIMARK [Suspect]
     Indication: METASTASIS
     Route: 042
     Dates: start: 20070126, end: 20070126

REACTIONS (1)
  - Nephrogenic systemic fibrosis [Not Recovered/Not Resolved]
